FAERS Safety Report 18113438 (Version 10)
Quarter: 2023Q4

REPORT INFORMATION
  Report Type: Spontaneous
  Country: US (occurrence: US)
  Receive Date: 20200805
  Receipt Date: 20231215
  Transmission Date: 20240110
  Serious: Yes (Hospitalization, Other)
  Sender: FDA-Public Use
  Company Number: US-PFIZER INC-2020297264

PATIENT
  Age: 70 Year
  Sex: Female
  Weight: 63 kg

DRUGS (15)
  1. IBRANCE [Suspect]
     Active Substance: PALBOCICLIB
     Indication: Breast cancer female
     Dosage: 75 MG, CYCLIC (ONCE DAILY FOR 21 DAYS OF 28 DAYS CYCLE)
     Route: 048
     Dates: start: 20200211
  2. HYDROCODONE [Concomitant]
     Active Substance: HYDROCODONE
     Indication: Tooth extraction
     Dosage: UNK
  3. LISINOPRIL [Concomitant]
     Active Substance: LISINOPRIL
     Dosage: 40 MG, 1X/DAY
  4. MELOXICAM [Concomitant]
     Active Substance: MELOXICAM
     Dosage: 7.5 MG, AS NEEDED (TWO A DAY)
  5. AMLODIPINE [Concomitant]
     Active Substance: AMLODIPINE BESYLATE
     Indication: Blood pressure abnormal
     Dosage: 5 MG, DAILY
  6. ANASTROZOLE [Concomitant]
     Active Substance: ANASTROZOLE
     Dosage: 1 MG, 1X/DAY
  7. LEVOTHYROXINE [Concomitant]
     Active Substance: LEVOTHYROXINE
     Dosage: UNK
  8. IPRATROPIUM BROMIDE [Concomitant]
     Active Substance: IPRATROPIUM BROMIDE\IPRATROPIUM BROMIDE ANHYDROUS
     Indication: Chronic sinusitis
     Dosage: (2 OR 3 PUFFS), AS NEEDED
  9. ACETAMINOPHEN\ASPIRIN\CAFFEINE\SALICYLAMIDE [Concomitant]
     Active Substance: ACETAMINOPHEN\ASPIRIN\CAFFEINE\SALICYLAMIDE
     Dosage: UNK
  10. CYMBALTA [Concomitant]
     Active Substance: DULOXETINE HYDROCHLORIDE
     Dosage: 90 MG, DAILY (TWO PILLS ONE IS 60MG AND ONE IS 30 MG)
  11. OXYBUTYNIN [Concomitant]
     Active Substance: OXYBUTYNIN
     Dosage: 5 MG, 3X/DAY
  12. COVID-19 VACCINE [Concomitant]
     Indication: COVID-19 immunisation
     Dosage: DOSE NUMBER UNKNOWN (BOOSTER), SINGLE
  13. MORPHINE [Concomitant]
     Active Substance: MORPHINE
     Indication: Back injury
     Dosage: 3.398 MG, 1X/DAY
     Route: 037
  14. MORPHINE [Concomitant]
     Active Substance: MORPHINE
     Dosage: 20 MG
  15. CLONIDINE [Concomitant]
     Active Substance: CLONIDINE
     Indication: Back injury
     Dosage: 127 MICRO AND THAT IS THE DAILY OR THE MONTHLY

REACTIONS (20)
  - Gallbladder disorder [Unknown]
  - Pancreatic enzymes increased [Unknown]
  - Hepatic enzyme increased [Unknown]
  - Hypertension [Unknown]
  - Abdominal pain [Unknown]
  - Dyspepsia [Unknown]
  - Spinal pain [Unknown]
  - Peripheral swelling [Unknown]
  - Fluid retention [Unknown]
  - Fatigue [Not Recovered/Not Resolved]
  - Diarrhoea [Not Recovered/Not Resolved]
  - Decreased appetite [Unknown]
  - Peripheral coldness [Not Recovered/Not Resolved]
  - Somnolence [Not Recovered/Not Resolved]
  - Skin burning sensation [Unknown]
  - Dry skin [Unknown]
  - Skin exfoliation [Unknown]
  - Weight increased [Unknown]
  - Nasopharyngitis [Unknown]
  - Pain in extremity [Unknown]

NARRATIVE: CASE EVENT DATE: 20220201
